FAERS Safety Report 8469688-2 (Version None)
Quarter: 2012Q2

REPORT INFORMATION
  Report Type: 
  Country: None (occurrence: None)
  Receive Date: 20120626
  Receipt Date: 20120620
  Transmission Date: 20120825
  Serious: Yes (Hospitalization, Other)
  Sender: FDA-Public Use
  Company Number: JP-ABBOTT-11P-087-0724439-00

PATIENT
  Sex: Male
  Weight: 80 kg

DRUGS (17)
  1. HUMIRA [Suspect]
     Indication: CROHN'S DISEASE
     Dates: start: 20110422, end: 20110422
  2. SODIUM FERROUS CITRATE [Concomitant]
     Indication: IRON DEFICIENCY ANAEMIA
     Dates: start: 20060901
  3. MESALAMINE [Concomitant]
     Dates: start: 20101013, end: 20110405
  4. LANSOPRAZOLE [Concomitant]
     Indication: ULCER
     Route: 048
     Dates: start: 20110512
  5. HUMIRA [Suspect]
     Dates: start: 20110702
  6. METRONIDAZOLE [Concomitant]
     Indication: CROHN'S DISEASE
     Route: 048
     Dates: start: 20060901
  7. DIFLUCORTOLONE VALERATE/LIDOCAINE [Concomitant]
     Indication: CROHN'S DISEASE
     Route: 061
  8. HUMIRA [Suspect]
     Dates: start: 20110623, end: 20110623
  9. MESALAMINE [Concomitant]
     Dates: start: 20081224, end: 20090526
  10. MESALAMINE [Concomitant]
     Dates: start: 20110406
  11. MESALAMINE [Concomitant]
     Route: 048
     Dates: start: 20090527, end: 20101012
  12. MERCAPTOPURINE [Suspect]
     Dates: start: 20110903
  13. SULFASALAZINE [Concomitant]
     Indication: CROHN'S DISEASE
     Dates: start: 20090527, end: 20101012
  14. MESALAMINE [Concomitant]
     Indication: CROHN'S DISEASE
     Route: 048
     Dates: start: 20060901
  15. MERCAPTOPURINE [Suspect]
     Indication: CROHN'S DISEASE
     Route: 048
     Dates: start: 20060901, end: 20110903
  16. SODIUM FERROUS CITRATE [Concomitant]
     Dates: end: 20110903
  17. MERCAPTOPURINE [Concomitant]
     Indication: PRODUCT USED FOR UNKNOWN INDICATION
     Dates: end: 20110902

REACTIONS (7)
  - AMYLASE INCREASED [None]
  - HERPES OPHTHALMIC [None]
  - HEMIPARESIS [None]
  - LACUNAR INFARCTION [None]
  - TRANSIENT ISCHAEMIC ATTACK [None]
  - DYSLALIA [None]
  - HEADACHE [None]
